FAERS Safety Report 8814100 (Version 1)
Quarter: 2012Q4

REPORT INFORMATION
  Report Type: Spontaneous
  Country: US (occurrence: None)
  Receive Date: 20120926
  Receipt Date: 20120926
  Transmission Date: 20130627
  Serious: Yes (Other)
  Sender: FDA-Public Use
  Company Number: None

PATIENT
  Sex: Male
  Weight: 90.72 kg

DRUGS (1)
  1. CLOPIDOGREL [Suspect]
     Indication: HEART DISORDER
     Dosage: 2 MOS . FOR jUNE + jULY 2012
     Dates: start: 201206, end: 201207

REACTIONS (2)
  - Epigastric discomfort [None]
  - Gastrooesophageal reflux disease [None]
